FAERS Safety Report 5831152-4 (Version None)
Quarter: 2008Q3

REPORT INFORMATION
  Report Type: 
  Country: None (occurrence: None)
  Receive Date: 20080801
  Receipt Date: 20080501
  Transmission Date: 20090109
  Serious: No
  Sender: FDA-Public Use
  Company Number: US-BRISTOL-MYERS SQUIBB COMPANY-14172779

PATIENT
  Age: 58 Year
  Sex: Male
  Weight: 105 kg

DRUGS (9)
  1. COUMADIN [Suspect]
     Dosage: INITIATED WITH 4 MG. RESTARTED ON FEB-2008.
     Dates: start: 20080424
  2. VENLAFAXINE HCL [Concomitant]
  3. SENNOSIDES [Concomitant]
  4. GABAPENTIN [Concomitant]
  5. ENALAPRIL MALEATE [Concomitant]
  6. SIMVASTATIN [Concomitant]
  7. FUROSEMIDE [Concomitant]
  8. RANITIDINE HCL [Concomitant]
  9. ENDOCET [Concomitant]
     Dosage: 1DF=1TAB;ALSO AS NECESSARY.

REACTIONS (1)
  - BURNING SENSATION [None]
